FAERS Safety Report 17202833 (Version 1)
Quarter: 2019Q4

REPORT INFORMATION
  Report Type: Spontaneous
  Country: JP (occurrence: JP)
  Receive Date: 20191226
  Receipt Date: 20191226
  Transmission Date: 20200122
  Serious: Yes (Disabling, Other)
  Sender: FDA-Public Use
  Company Number: JP-PFIZER INC-2019549564

PATIENT
  Age: 85 Year
  Sex: Male

DRUGS (9)
  1. MEMARY [Concomitant]
     Active Substance: MEMANTINE HYDROCHLORIDE
     Dosage: UNK
  2. JZOLOFT 50MG [Suspect]
     Active Substance: SERTRALINE HYDROCHLORIDE
     Indication: DEPRESSED MOOD
     Dosage: 50 MG, 1X/DAY
     Route: 048
     Dates: start: 20191203, end: 20191204
  3. JZOLOFT 50MG [Suspect]
     Active Substance: SERTRALINE HYDROCHLORIDE
     Indication: DEPRESSION
  4. DOGMATYL [Suspect]
     Active Substance: SULPIRIDE
     Indication: DEPRESSED MOOD
     Dosage: 50 MG, 1X/DAY
     Route: 048
     Dates: start: 20191203, end: 20191204
  5. WYPAX 0.5 [Suspect]
     Active Substance: LORAZEPAM
     Indication: DEPRESSED MOOD
     Dosage: 0.5 MG, 2X/DAY
     Route: 048
     Dates: start: 20191203, end: 20191204
  6. AMITIZA [Concomitant]
     Active Substance: LUBIPROSTONE
     Dosage: UNK
  7. THYRADIN S TABLETS [Concomitant]
     Dosage: UNK
  8. WYPAX 0.5 [Suspect]
     Active Substance: LORAZEPAM
     Indication: DEPRESSION
  9. DOGMATYL [Suspect]
     Active Substance: SULPIRIDE
     Indication: DEPRESSION

REACTIONS (2)
  - Delirium [Recovered/Resolved]
  - Abnormal behaviour [Recovered/Resolved]

NARRATIVE: CASE EVENT DATE: 20191203
